FAERS Safety Report 9336559 (Version 1)
Quarter: 2013Q2

REPORT INFORMATION
  Report Type: Spontaneous
  Country: US (occurrence: US)
  Receive Date: 20130607
  Receipt Date: 20130607
  Transmission Date: 20140414
  Serious: No
  Sender: FDA-Public Use
  Company Number: US-PFIZER INC-2013170402

PATIENT
  Age: 55 Year
  Sex: Male
  Weight: 97.96 kg

DRUGS (3)
  1. SINEQUAN [Suspect]
     Indication: DEPRESSION
     Dosage: 100 MG, 1X/DAY
     Route: 048
     Dates: start: 201305
  2. NEURONTIN [Concomitant]
     Dosage: UNK
  3. ATIVAN [Concomitant]
     Dosage: UNK

REACTIONS (9)
  - Anxiety [Unknown]
  - Depression [Unknown]
  - Feeling abnormal [Unknown]
  - Agitation [Unknown]
  - Dyspnoea [Unknown]
  - Dry mouth [Unknown]
  - Constipation [Unknown]
  - Dysuria [Unknown]
  - Akathisia [Unknown]
